FAERS Safety Report 5453916-1 (Version None)
Quarter: 2007Q3

REPORT INFORMATION
  Report Type: 
  Country: None (occurrence: None)
  Receive Date: 20070917
  Receipt Date: 20070914
  Transmission Date: 20080115
  Serious: Yes (Death, Hospitalization)
  Sender: FDA-Public Use
  Company Number: US-SANOFI-SYNTHELABO-F01200701108

PATIENT
  Sex: Female
  Weight: 63 kg

DRUGS (5)
  1. OXYCODONE HCL [Concomitant]
     Indication: PAIN
     Dosage: EVERY 4 TO 6 HOURS
     Route: 048
     Dates: start: 20070713
  2. FLUOROURACIL [Suspect]
     Dosage: 400 MG/M2 (672 MG) BOLUS THEN 600 MG/M2 (1008 MG) INFUSION
     Route: 042
     Dates: start: 20070823, end: 20070823
  3. LEUCOVORIN CALCIUM [Suspect]
     Route: 042
     Dates: start: 20070823, end: 20070823
  4. AFLIBERCEPT [Suspect]
     Route: 042
     Dates: start: 20070824, end: 20070824
  5. OXALIPLATIN [Suspect]
     Indication: PANCREATIC CARCINOMA
     Route: 042
     Dates: start: 20070822, end: 20070822

REACTIONS (1)
  - HAEMORRHAGIC STROKE [None]
